FAERS Safety Report 10257573 (Version 1)
Quarter: 2014Q2

REPORT INFORMATION
  Report Type: Spontaneous
  Country: FR (occurrence: FR)
  Receive Date: 20140625
  Receipt Date: 20140625
  Transmission Date: 20141212
  Serious: Yes (Hospitalization)
  Sender: FDA-Public Use
  Company Number: PHHY2014FR077493

PATIENT
  Age: 63 Year
  Sex: Female

DRUGS (1)
  1. ZOMETA [Suspect]
     Dosage: 4 DF, 4 INJECTIONS
     Dates: start: 201303, end: 201305

REACTIONS (1)
  - Osteonecrosis [Unknown]
